FAERS Safety Report 7341842-2 (Version None)
Quarter: 2011Q1

REPORT INFORMATION
  Report Type: 
  Country: None (occurrence: None)
  Receive Date: 20110309
  Receipt Date: 20110224
  Transmission Date: 20110831
  Serious: Yes (Other)
  Sender: FDA-Public Use
  Company Number: HU-ELI_LILLY_AND_COMPANY-HU201102007077

PATIENT
  Age: 52 Year
  Sex: Female

DRUGS (9)
  1. METOPROLOL [Concomitant]
     Dosage: 25 MG, DAILY (1/D)
  2. ZYPADHERA [Suspect]
     Indication: SCHIZOPHRENIA
     Dosage: 405 MG, MONTHLY (1/M)
     Route: 030
     Dates: start: 20100401
  3. RIVOTRIL [Concomitant]
     Dosage: 2 MG, 3/D
  4. HALOPERIDOL DECANOATE [Concomitant]
     Dosage: UNK, OTHER AT ONCE IN EVERY SECOND WEEK
     Route: 030
  5. HYPNOGEN [Concomitant]
     Dosage: 1 D/F, UNK
  6. LEGALON [Concomitant]
     Dosage: 100 MG, 2/D
  7. BROMOCRIPTIN-RICHTER [Concomitant]
     Dosage: 2.5 MG, DAILY (1/D)
     Route: 048
  8. RAWEL [Concomitant]
     Dosage: 1 D/F, WEEKLY (1/W)
  9. NEUROTOP [Concomitant]
     Dosage: 300 MG, 2/D

REACTIONS (3)
  - DISCOMFORT [None]
  - DYSARTHRIA [None]
  - DIZZINESS [None]
